FAERS Safety Report 10216061 (Version 1)
Quarter: 2014Q2

REPORT INFORMATION
  Report Type: Spontaneous
  Country: US (occurrence: None)
  Receive Date: 20140603
  Receipt Date: 20140603
  Transmission Date: 20141212
  Serious: Yes (Hospitalization)
  Sender: FDA-Public Use
  Company Number: None

PATIENT
  Age: 27 Year
  Sex: Female
  Weight: 76.8 kg

DRUGS (2)
  1. REMICADE [Suspect]
     Indication: CROHN^S DISEASE
     Dosage: 5MG/KG, @ WKS 0,2,6 IV INFUSION
     Route: 042
     Dates: start: 20140502
  2. PREDNISONE  TAB [Concomitant]

REACTIONS (3)
  - Arthralgia [None]
  - Gait disturbance [None]
  - Muscular weakness [None]
